FAERS Safety Report 7640185-7 (Version None)
Quarter: 2011Q3

REPORT INFORMATION
  Report Type: 
  Country: None (occurrence: None)
  Receive Date: 20110728
  Receipt Date: 20100503
  Transmission Date: 20111222
  Serious: Yes (Hospitalization, Other)
  Sender: FDA-Public Use
  Company Number: US-BAYER-200941138NA

PATIENT
  Age: 44 Year
  Sex: Female
  Weight: 59.091 kg

DRUGS (7)
  1. YAZ [Suspect]
     Indication: CONTRACEPTION
     Dates: start: 20060124, end: 20071120
  2. TRIAMTEREN HCT [Concomitant]
     Dates: start: 20040101
  3. YASMIN [Suspect]
     Indication: CONTRACEPTION
     Route: 048
     Dates: start: 20060124, end: 20071120
  4. DIOVAN [Concomitant]
     Dosage: UNK
     Dates: start: 20040101
  5. YASMIN [Suspect]
     Dosage: UNK
     Dates: start: 20031002
  6. YAZ [Suspect]
     Dosage: UNK
     Dates: start: 20031002
  7. NAPROXEN [Concomitant]
     Indication: PAIN

REACTIONS (8)
  - CONVULSION [None]
  - VISION BLURRED [None]
  - INTRACRANIAL VENOUS SINUS THROMBOSIS [None]
  - HEADACHE [None]
  - CONFUSIONAL STATE [None]
  - BABINSKI REFLEX TEST [None]
  - POSTURE ABNORMAL [None]
  - FLAT AFFECT [None]
